FAERS Safety Report 5941827-4 (Version None)
Quarter: 2008Q4

REPORT INFORMATION
  Report Type: 
  Country: None (occurrence: None)
  Receive Date: 20081105
  Receipt Date: 20081027
  Transmission Date: 20090506
  Serious: Yes (Hospitalization)
  Sender: FDA-Public Use
  Company Number: DE-ASTRAZENECA-2008PK02327

PATIENT
  Sex: Male

DRUGS (7)
  1. SEROQUEL [Interacting]
     Route: 048
     Dates: start: 20060705
  2. ELMENDOS [Interacting]
     Dates: start: 20060805
  3. CIPRALEX [Interacting]
     Dates: start: 20060629
  4. TILIDIN [Interacting]
     Indication: ANALGESIC THERAPY
  5. ZELDOX [Interacting]
     Dates: start: 20060715
  6. SORTIS [Interacting]
  7. CYMBALTA [Suspect]

REACTIONS (2)
  - DRUG INTERACTION [None]
  - HEPATIC FUNCTION ABNORMAL [None]
